FAERS Safety Report 25829232 (Version 1)
Quarter: 2025Q3

REPORT INFORMATION
  Report Type: Spontaneous
  Country: US (occurrence: US)
  Receive Date: 20250922
  Receipt Date: 20250922
  Transmission Date: 20251020
  Serious: No
  Sender: BIOCON
  Company Number: US-BIOCON-BCN-2025-000291

PATIENT

DRUGS (1)
  1. TACROLIMUS [Suspect]
     Active Substance: TACROLIMUS
     Indication: Renal transplant
     Dates: start: 20250825, end: 20250825

REACTIONS (8)
  - Abdominal distension [Recovering/Resolving]
  - Gastric dilatation [Recovering/Resolving]
  - Dyspepsia [Recovering/Resolving]
  - Abdominal pain upper [Recovering/Resolving]
  - Gastrooesophageal reflux disease [Recovering/Resolving]
  - Product odour abnormal [Unknown]
  - Product substitution issue [Unknown]
  - Therapeutic response changed [Unknown]

NARRATIVE: CASE EVENT DATE: 20250825
